FAERS Safety Report 23851732 (Version 1)
Quarter: 2024Q2

REPORT INFORMATION
  Report Type: Spontaneous
  Country: US (occurrence: US)
  Receive Date: 20240514
  Receipt Date: 20240514
  Transmission Date: 20240716
  Serious: Yes (Life-Threatening, Hospitalization, Other)
  Sender: FDA-Public Use
  Company Number: US-SCIEGENP-2024SCLIT00277

PATIENT
  Age: 54 Year
  Sex: Male

DRUGS (2)
  1. LISINOPRIL [Suspect]
     Active Substance: LISINOPRIL
     Indication: Hypertension
     Route: 065
  2. ALOGLIPTIN [Suspect]
     Active Substance: ALOGLIPTIN
     Indication: Type 2 diabetes mellitus
     Route: 065

REACTIONS (2)
  - Angioedema [Recovered/Resolved]
  - Drug interaction [Unknown]
